FAERS Safety Report 24934888 (Version 1)
Quarter: 2025Q1

REPORT INFORMATION
  Report Type: Spontaneous
  Country: US (occurrence: US)
  Receive Date: 20250206
  Receipt Date: 20250206
  Transmission Date: 20250409
  Serious: No
  Sender: HETERO
  Company Number: US-HETERO-HET2025US00488

PATIENT
  Sex: Male
  Weight: 73.48 kg

DRUGS (1)
  1. OSELTAMIVIR [Suspect]
     Active Substance: OSELTAMIVIR
     Indication: Influenza
     Route: 048
     Dates: start: 20250126

REACTIONS (1)
  - Diarrhoea [Not Recovered/Not Resolved]
